FAERS Safety Report 22636988 (Version 1)
Quarter: 2023Q2

REPORT INFORMATION
  Report Type: Spontaneous
  Country: US (occurrence: US)
  Receive Date: 20230626
  Receipt Date: 20230626
  Transmission Date: 20230722
  Serious: No
  Sender: FDA-Public Use
  Company Number: US-Bion-011760

PATIENT
  Age: 88 Year
  Sex: Female

DRUGS (1)
  1. LOPERAMIDE HYDROCHLORIDE [Suspect]
     Active Substance: LOPERAMIDE HYDROCHLORIDE
     Indication: Diarrhoea
     Dosage: 2 TABLET
     Dates: start: 20230616

REACTIONS (1)
  - Pollakiuria [Unknown]

NARRATIVE: CASE EVENT DATE: 20230619
